FAERS Safety Report 7974038-1 (Version None)
Quarter: 2011Q4

REPORT INFORMATION
  Report Type: 
  Country: None (occurrence: None)
  Receive Date: 20111213
  Receipt Date: 20111202
  Transmission Date: 20120403
  Serious: Yes (Hospitalization)
  Sender: FDA-Public Use
  Company Number: FR-GLAXOSMITHKLINE-B0766690A

PATIENT
  Sex: Male

DRUGS (9)
  1. FENTANYL [Suspect]
     Indication: PAIN
     Route: 062
     Dates: start: 20110927
  2. PERINDOPRIL [Suspect]
     Indication: CARDIAC FAILURE
     Dosage: 2MG VARIABLE DOSE
     Route: 048
     Dates: start: 20110928
  3. FUROSEMIDE [Suspect]
     Indication: CARDIAC FAILURE
     Dosage: 20MG VARIABLE DOSE
     Route: 048
     Dates: start: 20110928
  4. NEXIUM [Suspect]
     Indication: GASTRIC ULCER
     Dosage: 40MG PER DAY
     Route: 048
     Dates: start: 20110926, end: 20111003
  5. ACETAMINOPHEN [Suspect]
     Indication: PAIN
     Dosage: 1G THREE TIMES PER DAY
     Route: 048
     Dates: start: 20110928
  6. LOVENOX [Suspect]
     Indication: THROMBOSIS
     Dosage: 40MG PER DAY
     Route: 058
     Dates: start: 20110926
  7. FLUCONAZOLE [Suspect]
     Indication: FUNGAL INFECTION
     Dosage: 100MG VARIABLE DOSE
     Route: 048
     Dates: start: 20110930, end: 20111010
  8. OFLOXACIN [Suspect]
     Indication: INTERVERTEBRAL DISCITIS
     Dosage: 200MG TWICE PER DAY
     Route: 042
     Dates: start: 20110928, end: 20111003
  9. VALACYCLOVIR HYDROCHLORIDE [Suspect]
     Indication: HERPES VIRUS INFECTION
     Dosage: 500MG TWICE PER DAY
     Route: 048
     Dates: start: 20110930, end: 20111003

REACTIONS (3)
  - ANAEMIA [None]
  - WHITE BLOOD CELL COUNT DECREASED [None]
  - THROMBOCYTOPENIA [None]
